FAERS Safety Report 18384946 (Version 2)
Quarter: 2020Q4

REPORT INFORMATION
  Report Type: Report from Study
  Country: CR (occurrence: CR)
  Receive Date: 20201014
  Receipt Date: 20201023
  Transmission Date: 20210114
  Serious: Yes (Other)
  Sender: FDA-Public Use
  Company Number: NVSC2020CR274016

PATIENT
  Sex: Female

DRUGS (1)
  1. SCAPHO [Suspect]
     Active Substance: SECUKINUMAB
     Indication: ANKYLOSING SPONDYLITIS
     Dosage: 150 MG, QMO (BENEATH THE SKIN)
     Route: 058
     Dates: start: 20181117

REACTIONS (16)
  - Bronchitis [Recovered/Resolved]
  - Diarrhoea [Recovered/Resolved]
  - Product dose omission issue [Unknown]
  - Headache [Recovering/Resolving]
  - Chest pain [Recovering/Resolving]
  - Crying [Recovering/Resolving]
  - Pain in extremity [Recovered/Resolved]
  - COVID-19 [Recovering/Resolving]
  - Gait inability [Recovering/Resolving]
  - Back pain [Recovered/Resolved]
  - Cough [Recovered/Resolved]
  - Arthritis [Recovering/Resolving]
  - Dyspnoea [Recovered/Resolved]
  - Ageusia [Recovering/Resolving]
  - Affect lability [Recovered/Resolved]
  - Pain [Recovering/Resolving]

NARRATIVE: CASE EVENT DATE: 201910
